FAERS Safety Report 4890475-6 (Version None)
Quarter: 2005Q4

REPORT INFORMATION
  Report Type: 
  Country: None (occurrence: None)
  Receive Date: 20051216
  Receipt Date: 20050912
  Transmission Date: 20060501
  Serious: No
  Sender: FDA-Public Use
  Company Number: BDI-007512

PATIENT
  Sex: Female

DRUGS (2)
  1. MULTIHANCE [Suspect]
     Indication: NUCLEAR MAGNETIC RESONANCE IMAGING BRAIN
     Dosage: 10  ML ONCE IV
     Route: 042
     Dates: start: 20050909, end: 20050909
  2. MULTIHANCE [Suspect]
     Indication: SYNCOPE
     Dosage: 10  ML ONCE IV
     Route: 042
     Dates: start: 20050909, end: 20050909

REACTIONS (1)
  - URTICARIA [None]
